FAERS Safety Report 8234450-2 (Version None)
Quarter: 2012Q1

REPORT INFORMATION
  Report Type: 
  Country: None (occurrence: None)
  Receive Date: 20120326
  Receipt Date: 20120315
  Transmission Date: 20120608
  Serious: Yes (Hospitalization)
  Sender: FDA-Public Use
  Company Number: FR-ROCHE-1049263

PATIENT
  Age: 22 Year
  Sex: Female

DRUGS (4)
  1. FLUCONAZOLE [Concomitant]
  2. VESANOID [Suspect]
     Indication: ACUTE MYELOID LEUKAEMIA
     Route: 048
     Dates: start: 20120214, end: 20120225
  3. PURINETHOL [Concomitant]
  4. METHOTREXATE [Concomitant]

REACTIONS (2)
  - HYPOKALAEMIA [None]
  - HYPERCALCAEMIA [None]
